FAERS Safety Report 25775129 (Version 2)
Quarter: 2025Q4

REPORT INFORMATION
  Report Type: Spontaneous
  Country: US (occurrence: US)
  Receive Date: 20250909
  Receipt Date: 20251021
  Transmission Date: 20260117
  Serious: No
  Sender: NEUROCRINE BIOSCIENCES
  Company Number: US-NEUROCRINE BIOSCIENCES INC.-2025NBI11381

PATIENT
  Sex: Male

DRUGS (4)
  1. CRENESSITY [Suspect]
     Active Substance: CRINECERFONT
     Indication: Adrenogenital syndrome
     Dosage: 100 MILLIGRAM, BID
     Route: 065
     Dates: start: 202506
  2. HYDROCORTISONE [Concomitant]
     Active Substance: HYDROCORTISONE
     Dosage: 20 MILLIGRAM, QD
  3. HYDROCORTISONE [Concomitant]
     Active Substance: HYDROCORTISONE
     Dosage: 15 MILLIGRAM, QD
  4. HYDROCORTISONE [Concomitant]
     Active Substance: HYDROCORTISONE
     Dosage: 20 MILLIGRAM, QD

REACTIONS (5)
  - Sperm concentration decreased [Recovering/Resolving]
  - Spermatozoa progressive motility decreased [Recovering/Resolving]
  - Blood testosterone decreased [Recovering/Resolving]
  - Blood androstenedione increased [Recovering/Resolving]
  - 17-hydroxyprogesterone increased [Recovering/Resolving]
